FAERS Safety Report 9033830 (Version 1)
Quarter: 2013Q1

REPORT INFORMATION
  Report Type: Spontaneous
  Country: US (occurrence: US)
  Receive Date: 20130128
  Receipt Date: 20130128
  Transmission Date: 20140127
  Serious: Yes (Hospitalization)
  Sender: FDA-Public Use
  Company Number: US-AMGEN-USASP2012071896

PATIENT
  Sex: Female

DRUGS (1)
  1. ENBREL [Suspect]
     Indication: RHEUMATOID ARTHRITIS
     Dosage: UNK
     Dates: start: 20070901

REACTIONS (4)
  - Haemorrhage [Recovered/Resolved]
  - Wound [Recovered/Resolved]
  - Polyp [Recovered/Resolved]
  - Lung infection [Not Recovered/Not Resolved]
